FAERS Safety Report 10173807 (Version 1)
Quarter: 2014Q2

REPORT INFORMATION
  Report Type: Spontaneous
  Country: US (occurrence: None)
  Receive Date: 20140514
  Receipt Date: 20140514
  Transmission Date: 20141212
  Serious: Yes (Other)
  Sender: FDA-Public Use
  Company Number: None

PATIENT
  Age: 64 Year
  Sex: Female
  Weight: 75.3 kg

DRUGS (1)
  1. DOXYCYCLINE 100 MG. [Suspect]
     Indication: HUMAN ANAPLASMOSIS
     Route: 048
     Dates: start: 20140507

REACTIONS (5)
  - Paraesthesia [None]
  - Oedema [None]
  - Tinnitus [None]
  - Erythema [None]
  - Chest pain [None]
